FAERS Safety Report 7790856-7 (Version None)
Quarter: 2011Q3

REPORT INFORMATION
  Report Type: 
  Country: None (occurrence: None)
  Receive Date: 20110930
  Receipt Date: 20110926
  Transmission Date: 20111222
  Serious: Yes (Other)
  Sender: FDA-Public Use
  Company Number: US-ASTRAZENECA-2010SE16308

PATIENT
  Age: 86 Year
  Sex: Female

DRUGS (1)
  1. NEXIUM [Suspect]
     Route: 048

REACTIONS (6)
  - DYSPEPSIA [None]
  - MYOCARDIAL INFARCTION [None]
  - HYPERTENSION [None]
  - MALAISE [None]
  - DRUG DOSE OMISSION [None]
  - HEARING IMPAIRED [None]
